FAERS Safety Report 14336525 (Version 2)
Quarter: 2018Q1

REPORT INFORMATION
  Report Type: Spontaneous
  Country: CN (occurrence: CN)
  Receive Date: 20171229
  Receipt Date: 20180309
  Transmission Date: 20180509
  Serious: Yes (Life-Threatening, Other)
  Sender: FDA-Public Use
  Company Number: CN-CIPLA LTD.-2017CN28108

PATIENT

DRUGS (10)
  1. CISPLATIN. [Suspect]
     Active Substance: CISPLATIN
     Indication: OVARIAN EPITHELIAL CANCER
     Dosage: UNK, CYCLICAL
     Route: 065
  2. OXALIPLATIN. [Suspect]
     Active Substance: OXALIPLATIN
     Indication: OVARIAN EPITHELIAL CANCER
     Dosage: UNK, CYCLICAL
     Route: 065
     Dates: start: 2016
  3. PACLITAXEL. [Suspect]
     Active Substance: PACLITAXEL
     Indication: OVARIAN EPITHELIAL CANCER
     Dosage: UNK, CYCLICAL
     Route: 065
  4. GEMCITABINE [Suspect]
     Active Substance: GEMCITABINE\GEMCITABINE HYDROCHLORIDE
     Indication: OVARIAN EPITHELIAL CANCER
     Dosage: UNK, CYCLICAL
     Route: 065
  5. LOBAPLATIN [Suspect]
     Active Substance: LOBAPLATIN
     Indication: OVARIAN EPITHELIAL CANCER
     Dosage: UNK, CYCLICAL
     Route: 065
  6. CARBOPLATIN. [Suspect]
     Active Substance: CARBOPLATIN
     Dosage: UNK, CYCLICAL
     Route: 065
  7. CARBOPLATIN. [Suspect]
     Active Substance: CARBOPLATIN
     Indication: OVARIAN EPITHELIAL CANCER
     Dosage: UNK, CYCLICAL
     Route: 065
  8. PACLITAXEL. [Suspect]
     Active Substance: PACLITAXEL
     Dosage: UNK, CYCLICAL
     Route: 065
  9. DOXORUBICIN HYDROCHLORIDE. [Suspect]
     Active Substance: DOXORUBICIN HYDROCHLORIDE
     Indication: OVARIAN EPITHELIAL CANCER
     Dosage: UNK, CYCLICAL
     Route: 065
     Dates: start: 2016
  10. DOCETAXEL. [Suspect]
     Active Substance: DOCETAXEL
     Indication: OVARIAN EPITHELIAL CANCER
     Dosage: UNK, CYCLICAL
     Route: 065

REACTIONS (5)
  - Drug intolerance [Unknown]
  - Drug resistance [Unknown]
  - Ovarian cancer metastatic [Unknown]
  - Therapy non-responder [Unknown]
  - Neoplasm progression [Unknown]

NARRATIVE: CASE EVENT DATE: 20160223
